FAERS Safety Report 5219369-3 (Version None)
Quarter: 2007Q1

REPORT INFORMATION
  Report Type: 
  Country: None (occurrence: None)
  Receive Date: 20061121
  Receipt Date: 20060829
  Transmission Date: 20070707
  Serious: No
  Sender: FDA-Public Use
  Company Number: TPA2006A01457

PATIENT
  Age: 47 Year
  Sex: Male
  Weight: 92.9874 kg

DRUGS (4)
  1. ROZEREM [Suspect]
     Indication: INSOMNIA
     Dosage: SEE IMAGE
     Route: 048
     Dates: start: 20060729
  2. CYMBALTA [Concomitant]
  3. VALIUM [Concomitant]
  4. TYLENOL #3 (CODEINE PHOSPHATE, PARACETAMOL) [Concomitant]

REACTIONS (2)
  - PRESCRIBED OVERDOSE [None]
  - THERAPEUTIC RESPONSE DELAYED [None]
